FAERS Safety Report 14828290 (Version 18)
Quarter: 2022Q1

REPORT INFORMATION
  Report Type: Spontaneous
  Country: DE (occurrence: DE)
  Receive Date: 20180430
  Receipt Date: 20220309
  Transmission Date: 20220423
  Serious: Yes (Hospitalization)
  Sender: FDA-Public Use
  Company Number: DE-BFARM-18006669

PATIENT
  Age: 62 Year
  Sex: Female
  Weight: 45 kg

DRUGS (68)
  1. FENTANYL [Suspect]
     Active Substance: FENTANYL
     Indication: Product used for unknown indication
     Dosage: 50 UG, QD
     Route: 062
  2. RAPAMUNE [Interacting]
     Active Substance: SIROLIMUS
     Indication: Product used for unknown indication
     Route: 048
  3. RAPAMUNE [Interacting]
     Active Substance: SIROLIMUS
     Route: 048
  4. METAMIZOLE [Interacting]
     Active Substance: METAMIZOLE
     Indication: Product used for unknown indication
     Dosage: 30 TROPFEN
     Route: 048
  5. METAMIZOLE [Interacting]
     Active Substance: METAMIZOLE
     Route: 048
  6. METAMIZOLE [Interacting]
     Active Substance: METAMIZOLE
     Route: 048
  7. LACTULOSE [Interacting]
     Active Substance: LACTULOSE
     Indication: Product used for unknown indication
     Dosage: 1 DF, QD
     Route: 048
  8. LACTULOSE [Interacting]
     Active Substance: LACTULOSE
     Dosage: 1 DF, QD
     Route: 048
  9. LACTULOSE [Interacting]
     Active Substance: LACTULOSE
     Route: 048
  10. BENSERAZIDE\LEVODOPA [Interacting]
     Active Substance: BENSERAZIDE\LEVODOPA
     Indication: Product used for unknown indication
     Route: 048
  11. BENSERAZIDE\LEVODOPA [Interacting]
     Active Substance: BENSERAZIDE\LEVODOPA
     Dosage: 100 MG, BID
     Route: 048
  12. SIMVASTATIN [Interacting]
     Active Substance: SIMVASTATIN
     Indication: Product used for unknown indication
     Dosage: 40 MG, QD
     Route: 048
  13. FLUTICASONE PROPIONATE\SALMETEROL XINAFOATE [Suspect]
     Active Substance: FLUTICASONE PROPIONATE\SALMETEROL XINAFOATE
     Indication: Product used for unknown indication
     Dosage: 50OR500 MCG?2 DF, QD
     Route: 055
  14. FLUTICASONE PROPIONATE\SALMETEROL XINAFOATE [Suspect]
     Active Substance: FLUTICASONE PROPIONATE\SALMETEROL XINAFOATE
     Dosage: 1 DF, QD
     Route: 055
  15. MAGNESIUM ASPARTATE ANHYDROUS [Suspect]
     Active Substance: MAGNESIUM ASPARTATE ANHYDROUS
     Indication: Product used for unknown indication
     Dosage: 2 DF, QD
     Route: 048
  16. MAGNESIUM ASPARTATE ANHYDROUS [Suspect]
     Active Substance: MAGNESIUM ASPARTATE ANHYDROUS
     Route: 048
  17. MAGNESIUM ASPARTATE ANHYDROUS [Suspect]
     Active Substance: MAGNESIUM ASPARTATE ANHYDROUS
     Route: 048
  18. AZATHIOPRINE [Suspect]
     Active Substance: AZATHIOPRINE
     Indication: Product used for unknown indication
     Dosage: 50 MG, QD
     Route: 048
  19. ESIDRIX [Suspect]
     Active Substance: HYDROCHLOROTHIAZIDE
     Indication: Product used for unknown indication
     Route: 048
  20. METAMIZOLE SODIUM [Suspect]
     Active Substance: METAMIZOLE SODIUM
     Indication: Product used for unknown indication
     Dosage: 30 DROP, TID
     Route: 048
  21. URSODIOL [Suspect]
     Active Substance: URSODIOL
     Indication: Product used for unknown indication
     Route: 048
  22. SPIRIVA [Suspect]
     Active Substance: TIOTROPIUM BROMIDE MONOHYDRATE
     Indication: Product used for unknown indication
     Route: 055
  23. SPIRIVA [Suspect]
     Active Substance: TIOTROPIUM BROMIDE MONOHYDRATE
     Route: 055
  24. SPIRIVA [Suspect]
     Active Substance: TIOTROPIUM BROMIDE MONOHYDRATE
     Route: 055
  25. POTASSIUM CHLORIDE [Suspect]
     Active Substance: POTASSIUM CHLORIDE
     Indication: Product used for unknown indication
     Route: 048
  26. POTASSIUM CHLORIDE [Suspect]
     Active Substance: POTASSIUM CHLORIDE
     Route: 048
  27. CHOLECALCIFEROL [Suspect]
     Active Substance: CHOLECALCIFEROL
     Indication: Product used for unknown indication
     Dosage: 100 IE
     Route: 048
  28. CHOLECALCIFEROL [Suspect]
     Active Substance: CHOLECALCIFEROL
     Dosage: 100 OT
     Route: 048
  29. ACETAMINOPHEN\PENTAZOCINE HYDROCHLORIDE [Suspect]
     Active Substance: ACETAMINOPHEN\PENTAZOCINE HYDROCHLORIDE
     Indication: Product used for unknown indication
     Dosage: 90 DF, QD
     Route: 048
  30. ACETAMINOPHEN\PENTAZOCINE HYDROCHLORIDE [Suspect]
     Active Substance: ACETAMINOPHEN\PENTAZOCINE HYDROCHLORIDE
     Route: 048
  31. ACETAMINOPHEN\PENTAZOCINE HYDROCHLORIDE [Suspect]
     Active Substance: ACETAMINOPHEN\PENTAZOCINE HYDROCHLORIDE
     Route: 048
  32. EZETIMIBE [Suspect]
     Active Substance: EZETIMIBE
     Indication: Product used for unknown indication
     Route: 048
  33. PANTOZOL [Suspect]
     Active Substance: PANTOPRAZOLE SODIUM
     Indication: Product used for unknown indication
     Route: 048
  34. SPIRONOLACTONE [Suspect]
     Active Substance: SPIRONOLACTONE
     Indication: Product used for unknown indication
     Route: 048
  35. SPIRONOLACTONE [Suspect]
     Active Substance: SPIRONOLACTONE
     Route: 048
  36. SPIRONOLACTONE [Suspect]
     Active Substance: SPIRONOLACTONE
     Route: 048
  37. SPIRONOLACTONE [Suspect]
     Active Substance: SPIRONOLACTONE
     Route: 048
  38. BENSERAZIDE HYDROCHLORIDE [Suspect]
     Active Substance: BENSERAZIDE HYDROCHLORIDE
     Indication: Product used for unknown indication
     Dosage: 1-0-2.5-0
     Route: 048
  39. BENSERAZIDE HYDROCHLORIDE [Suspect]
     Active Substance: BENSERAZIDE HYDROCHLORIDE
     Route: 065
  40. PENTAZOCINE HYDROCHLORIDE [Suspect]
     Active Substance: PENTAZOCINE HYDROCHLORIDE
     Indication: Product used for unknown indication
     Route: 048
  41. PENTAZOCINE HYDROCHLORIDE [Suspect]
     Active Substance: PENTAZOCINE HYDROCHLORIDE
     Route: 048
  42. PENTAZOCINE HYDROCHLORIDE [Suspect]
     Active Substance: PENTAZOCINE HYDROCHLORIDE
     Route: 048
  43. BENSERAZIDE\LEVODOPA [Suspect]
     Active Substance: BENSERAZIDE\LEVODOPA
     Indication: Product used for unknown indication
     Route: 055
  44. ACETAMINOPHEN\CAFFEINE\PHENYLEPHRINE HYDROCHLORIDE [Suspect]
     Active Substance: ACETAMINOPHEN\CAFFEINE\PHENYLEPHRINE HYDROCHLORIDE
     Indication: Product used for unknown indication
     Route: 048
  45. ACETAMINOPHEN\CAFFEINE\PHENYLEPHRINE HYDROCHLORIDE [Suspect]
     Active Substance: ACETAMINOPHEN\CAFFEINE\PHENYLEPHRINE HYDROCHLORIDE
     Route: 048
  46. TIOTROPIUM BROMIDE [Suspect]
     Active Substance: TIOTROPIUM BROMIDE
     Indication: Product used for unknown indication
     Dosage: ADDITIONAL INFO: MISUSE,MEDICATION ERROR
     Route: 055
  47. TIOTROPIUM BROMIDE [Suspect]
     Active Substance: TIOTROPIUM BROMIDE
     Route: 055
  48. TIOTROPIUM BROMIDE [Suspect]
     Active Substance: TIOTROPIUM BROMIDE
     Route: 065
  49. SIROLIMUS [Suspect]
     Active Substance: SIROLIMUS
     Indication: Product used for unknown indication
     Route: 048
  50. SPIRONOLACTONE [Suspect]
     Active Substance: SPIRONOLACTONE
     Indication: Product used for unknown indication
     Dosage: 2 DF, QD
     Route: 048
  51. SPIRONOLACTONE [Suspect]
     Active Substance: SPIRONOLACTONE
     Dosage: 200 MG, BID
     Route: 048
  52. SPIRONOLACTONE [Suspect]
     Active Substance: SPIRONOLACTONE
     Dosage: 100 MG, QD
     Route: 048
  53. PANTOPRAZOLE SODIUM [Suspect]
     Active Substance: PANTOPRAZOLE SODIUM
     Indication: Product used for unknown indication
     Dosage: 40 MG, QD
     Route: 048
  54. HYDROCHLOROTHIAZIDE [Suspect]
     Active Substance: HYDROCHLOROTHIAZIDE
     Indication: Product used for unknown indication
     Dosage: 25 MG, QD
     Route: 048
  55. URSODIOL [Suspect]
     Active Substance: URSODIOL
     Indication: Product used for unknown indication
     Dosage: 500 MG, BID
     Route: 048
  56. EZETIMIBE [Suspect]
     Active Substance: EZETIMIBE
     Indication: Product used for unknown indication
     Route: 048
  57. CHOLECALCIFEROL [Suspect]
     Active Substance: CHOLECALCIFEROL
     Indication: Product used for unknown indication
     Route: 048
  58. FLUTICASONE PROPIONATE\SALMETEROL XINAFOATE [Suspect]
     Active Substance: FLUTICASONE PROPIONATE\SALMETEROL XINAFOATE
     Indication: Product used for unknown indication
     Dosage: 2 DF, QD
     Route: 055
  59. FLUTICASONE PROPIONATE\SALMETEROL XINAFOATE [Suspect]
     Active Substance: FLUTICASONE PROPIONATE\SALMETEROL XINAFOATE
     Dosage: 1 DF, QD
     Route: 055
  60. POTASSIUM CHLORIDE [Suspect]
     Active Substance: POTASSIUM CHLORIDE
     Indication: Product used for unknown indication
     Route: 048
  61. AMBROXOL [Suspect]
     Active Substance: AMBROXOL
     Indication: Product used for unknown indication
     Dosage: ADDITIONAL INFO: MISUSE,MEDICATION ERROR
     Route: 048
  62. ACETAMINOPHEN [Suspect]
     Active Substance: ACETAMINOPHEN
     Indication: Product used for unknown indication
     Route: 065
  63. ACETAMINOPHEN [Suspect]
     Active Substance: ACETAMINOPHEN
     Route: 065
  64. ACETAMINOPHEN [Suspect]
     Active Substance: ACETAMINOPHEN
     Route: 065
  65. FUROSEMIDE [Suspect]
     Active Substance: FUROSEMIDE
     Indication: Product used for unknown indication
     Route: 048
  66. FUROSEMIDE [Suspect]
     Active Substance: FUROSEMIDE
     Route: 048
  67. FUROSEMIDE [Suspect]
     Active Substance: FUROSEMIDE
     Route: 048
  68. AMBROXOL HYDROCHLORIDE [Suspect]
     Active Substance: AMBROXOL HYDROCHLORIDE
     Indication: Product used for unknown indication
     Dosage: 30 DROP (1/12 MILILITER)
     Route: 048

REACTIONS (3)
  - General physical health deterioration [Unknown]
  - Product prescribing error [Unknown]
  - Drug interaction [Unknown]

NARRATIVE: CASE EVENT DATE: 20150916
